FAERS Safety Report 5515646-7 (Version None)
Quarter: 2007Q4

REPORT INFORMATION
  Report Type: 
  Country: None (occurrence: None)
  Receive Date: 20071113
  Receipt Date: 20070723
  Transmission Date: 20080405
  Serious: No
  Sender: FDA-Public Use
  Company Number: A0665811A

PATIENT
  Age: 69 Year
  Sex: Female

DRUGS (7)
  1. COREG [Suspect]
     Indication: HYPERTENSION
     Dosage: 25MG TWICE PER DAY
     Route: 048
  2. MIRAPEX [Concomitant]
  3. ASPIRIN [Concomitant]
  4. MULTI-VITAMIN [Concomitant]
  5. CALCIUM [Concomitant]
  6. KLONOPIN [Concomitant]
  7. ACIPHEX [Concomitant]

REACTIONS (2)
  - DIZZINESS [None]
  - NAUSEA [None]
